FAERS Safety Report 23312540 (Version 1)
Quarter: 2023Q4

REPORT INFORMATION
  Report Type: Spontaneous
  Country: US (occurrence: US)
  Receive Date: 20231219
  Receipt Date: 20231219
  Transmission Date: 20240110
  Serious: Yes (Life-Threatening, Hospitalization)
  Sender: FDA-Public Use
  Company Number: US-ENDO PHARMACEUTICALS INC-2023-006092

PATIENT
  Age: 17 Year
  Sex: Male

DRUGS (2)
  1. FLUVOXAMINE MALEATE [Suspect]
     Active Substance: FLUVOXAMINE MALEATE
     Indication: Product used for unknown indication
     Dosage: 32 MILLIGRAM/KILOGRAM, UNKNOWN
     Route: 048
  2. QUETIAPINE FUMARATE [Suspect]
     Active Substance: QUETIAPINE FUMARATE
     Indication: Product used for unknown indication
     Dosage: 130 MILLIGRAM/KILOGRAM, UNKNOWN
     Route: 048

REACTIONS (5)
  - Vasoplegia syndrome [Recovered/Resolved]
  - Multiple organ dysfunction syndrome [Recovering/Resolving]
  - Suicide attempt [Recovered/Resolved]
  - Rhabdomyolysis [Unknown]
  - Intentional overdose [Recovered/Resolved]
